FAERS Safety Report 7225707-2 (Version None)
Quarter: 2011Q1

REPORT INFORMATION
  Report Type: 
  Country: None (occurrence: None)
  Receive Date: 20110113
  Receipt Date: 20110110
  Transmission Date: 20110831
  Serious: Yes (Hospitalization, Disabling)
  Sender: FDA-Public Use
  Company Number: CA-ABBOTT-10P-028-0646167-00

PATIENT
  Sex: Male

DRUGS (18)
  1. DANTRIUM [Concomitant]
     Indication: MUSCLE RELAXANT THERAPY
     Dosage: 2-25 MG CAPS TWICE DAILY
     Route: 048
  2. CHLORAL HYDRATE [Concomitant]
     Indication: INSOMNIA
     Dosage: 500MG/5ML; 5-10ML EVERY NIGHT
     Route: 048
  3. TRAZODONE HCL [Concomitant]
     Indication: INSOMNIA
     Dosage: AT NIGHT
  4. TYLENOL WITH CODEIN #3 [Concomitant]
     Indication: PAIN
     Route: 048
  5. FERROGLUCONATE [Concomitant]
     Indication: IRON DEFICIENCY
     Route: 048
  6. PANTOLOC [Concomitant]
     Indication: GASTROINTESTINAL DISORDER
     Route: 048
  7. LUPRON DEPOT [Suspect]
     Indication: PROSTATE CANCER
     Route: 050
     Dates: start: 20070524, end: 20100526
  8. LIPITOR [Concomitant]
     Indication: HYPERCHOLESTEROLAEMIA
     Route: 048
  9. ACTOS [Concomitant]
     Indication: DIABETES MELLITUS
     Route: 048
  10. NITRO-DUR [Concomitant]
     Indication: ANGINA PECTORIS
     Dosage: 0.4MG/HR PATCH DAILY
     Route: 061
  11. NITRO-DUR [Concomitant]
     Indication: PROPHYLAXIS
  12. RAMIPRIL [Concomitant]
     Indication: HYPERTENSION
     Route: 048
  13. TYLENOL WITH CODEIN #3 [Concomitant]
     Dosage: 2 TABS EVERY 8 HRS AS NEEDED
  14. PLAVIX [Concomitant]
     Indication: PROPHYLAXIS
  15. BUPROPION [Concomitant]
     Indication: DEPRESSION
     Route: 048
  16. PLAVIX [Concomitant]
     Indication: PLATELET AGGREGATION
     Route: 048
  17. CIPROFLAXACIN [Concomitant]
     Indication: ANTIBIOTIC PROPHYLAXIS
     Route: 048
  18. CITALOPRAM HYDROBROMIDE [Concomitant]
     Indication: ANTIDEPRESSANT THERAPY
     Route: 048

REACTIONS (3)
  - SWELLING [None]
  - MOBILITY DECREASED [None]
  - FALL [None]
